FAERS Safety Report 7016522-3 (Version None)
Quarter: 2010Q3

REPORT INFORMATION
  Report Type: 
  Country: None (occurrence: None)
  Receive Date: 20100927
  Receipt Date: 20100922
  Transmission Date: 20110219
  Serious: Yes (Hospitalization)
  Sender: FDA-Public Use
  Company Number: A0836575A

PATIENT
  Age: 57 Year
  Sex: Male
  Weight: 89.1 kg

DRUGS (10)
  1. AVANDIA [Suspect]
     Indication: DIABETES MELLITUS
     Dosage: 8MG PER DAY
     Route: 048
     Dates: start: 19990427, end: 20040801
  2. CLONIDINE [Concomitant]
  3. LASIX [Concomitant]
  4. DILTIAZEM [Concomitant]
  5. ATENOLOL [Concomitant]
  6. GLYBURIDE [Concomitant]
  7. PRAVACHOL [Concomitant]
  8. PROCRIT [Concomitant]
  9. UNIVASC [Concomitant]
  10. INSULIN [Concomitant]

REACTIONS (5)
  - CARDIAC DISORDER [None]
  - HYPERCHOLESTEROLAEMIA [None]
  - HYPERTENSION [None]
  - MYOCARDIAL INFARCTION [None]
  - RENAL FAILURE [None]
